FAERS Safety Report 26119234 (Version 1)
Quarter: 2025Q4

REPORT INFORMATION
  Report Type: Spontaneous
  Country: US (occurrence: US)
  Receive Date: 20251204
  Receipt Date: 20251204
  Transmission Date: 20260117
  Serious: No
  Sender: BAUSCH AND LOMB
  Company Number: US-BAUSCHBL-2025BNL032787

PATIENT
  Sex: Female

DRUGS (2)
  1. BROMFENAC [Suspect]
     Active Substance: BROMFENAC
     Indication: Eye inflammation
     Route: 065
     Dates: start: 2025
  2. PROLENSA [Concomitant]
     Active Substance: BROMFENAC SODIUM
     Indication: Product used for unknown indication

REACTIONS (2)
  - Visual impairment [Unknown]
  - Product substitution issue [Unknown]

NARRATIVE: CASE EVENT DATE: 20250101
